FAERS Safety Report 24059790 (Version 1)
Quarter: 2024Q3

REPORT INFORMATION
  Report Type: Spontaneous
  Country: US (occurrence: None)
  Receive Date: 20240704
  Receipt Date: 20240704
  Transmission Date: 20241017
  Serious: Yes (Other)
  Sender: Public
  Company Number: None

PATIENT
  Age: 27 Year
  Sex: Male
  Weight: 51.75 kg

DRUGS (12)
  1. .DELTA.9-TETRAHYDROCANNABINOL\HERBALS\MUSHROOMS UNSPECIFIED [Suspect]
     Active Substance: .DELTA.9-TETRAHYDROCANNABINOL\HERBALS\MUSHROOMS UNSPECIFIED
     Indication: Anxiety
  2. .DELTA.9-TETRAHYDROCANNABINOL\HERBALS\MUSHROOMS UNSPECIFIED [Suspect]
     Active Substance: .DELTA.9-TETRAHYDROCANNABINOL\HERBALS\MUSHROOMS UNSPECIFIED
  3. ESTRADIOL VALERATE [Concomitant]
     Active Substance: ESTRADIOL VALERATE
  4. Sprionolactone [Concomitant]
  5. FLEXERIL [Concomitant]
     Active Substance: CYCLOBENZAPRINE HYDROCHLORIDE
  6. BUSPAR [Concomitant]
     Active Substance: BUSPIRONE HYDROCHLORIDE
  7. PROZAC [Concomitant]
     Active Substance: FLUOXETINE HYDROCHLORIDE
  8. CLONAZEPAM [Concomitant]
     Active Substance: CLONAZEPAM
  9. Guafacine ER [Concomitant]
  10. METHYLPHENIDATE [Concomitant]
     Active Substance: METHYLPHENIDATE
  11. LAMOTRIGINE [Concomitant]
     Active Substance: LAMOTRIGINE
  12. VITAMINS [Concomitant]
     Active Substance: VITAMINS

REACTIONS (7)
  - Mental disorder [None]
  - Sedation [None]
  - Product formulation issue [None]
  - Product advertising issue [None]
  - Product contamination [None]
  - Product label issue [None]
  - Legal problem [None]

NARRATIVE: CASE EVENT DATE: 20240703
